FAERS Safety Report 8539626 (Version 5)
Quarter: 2015Q4

REPORT INFORMATION
  Report Type: Spontaneous
  Country: US (occurrence: US)
  Receive Date: 20120502
  Receipt Date: 20151102
  Transmission Date: 20160305
  Serious: No
  Sender: FDA-Public Use
  Company Number: US-BIOGENIDEC-2012BI014491

PATIENT
  Age: 48 Year
  Sex: Female

DRUGS (2)
  1. TYSABRI [Suspect]
     Active Substance: NATALIZUMAB
     Indication: MULTIPLE SCLEROSIS
     Route: 042
     Dates: start: 20110422, end: 20120504
  2. TYSABRI [Suspect]
     Active Substance: NATALIZUMAB
     Indication: MULTIPLE SCLEROSIS

REACTIONS (12)
  - Muscle spasms [Not Recovered/Not Resolved]
  - Back pain [Recovered/Resolved]
  - Urinary tract infection [Recovered/Resolved]
  - Gait disturbance [Recovered/Resolved]
  - Cystitis [Recovered/Resolved]
  - Bladder spasm [Recovered/Resolved]
  - Nausea [Recovered/Resolved]
  - Multiple sclerosis relapse [Recovered/Resolved]
  - Drug hypersensitivity [Recovered/Resolved]
  - Muscle spasticity [Not Recovered/Not Resolved]
  - Fungal infection [Recovered/Resolved]
  - Bladder pain [Recovered/Resolved]

NARRATIVE: CASE EVENT DATE: 201201
